FAERS Safety Report 8266705 (Version 4)
Quarter: 2014Q1

REPORT INFORMATION
  Report Type: Spontaneous
  Country: JP (occurrence: None)
  Receive Date: 20111121
  Receipt Date: 20140224
  Transmission Date: 20141002
  Serious: Yes (Hospitalization, Other)
  Sender: FDA-Public Use
  Company Number: ADR-2011-11549

PATIENT
  Age: 49 Year
  Sex: Male

DRUGS (2)
  1. GABALON [Suspect]
     Indication: SPINAL CORD DISORDER
     Dosage: 65 MCG/ML
  2. ANTIOBIOTICS ROCEFHIN INTRAVENOUS (IV) DRIP; 2G/DAY [Concomitant]

REACTIONS (8)
  - Wound infection [None]
  - Purulence [None]
  - Haemorrhage [None]
  - Implant site infection [None]
  - Post procedural haemorrhage [None]
  - Device related infection [None]
  - No therapeutic response [None]
  - Implant site haemorrhage [None]
